FAERS Safety Report 16819779 (Version 1)
Quarter: 2019Q3

REPORT INFORMATION
  Report Type: Spontaneous
  Country: CO (occurrence: CO)
  Receive Date: 20190917
  Receipt Date: 20190917
  Transmission Date: 20191005
  Serious: Yes (Hospitalization, Disabling, Other)
  Sender: FDA-Public Use
  Company Number: CO-009507513-1909COL005723

PATIENT
  Age: 12 Year
  Sex: Female
  Weight: 31 kg

DRUGS (2)
  1. BETAMETHASONE. [Suspect]
     Active Substance: BETAMETHASONE
     Indication: ALOPECIA AREATA
     Dosage: UNK
     Route: 048
     Dates: start: 2015
  2. GARDASIL [Suspect]
     Active Substance: HUMAN PAPILLOMAVIRUS QUADRIVALENT (TYPES 6, 11, 16, AND 18) VACCINE, RECOMBINANT
     Indication: IMMUNISATION
     Dosage: 1 DOSAGE FORM
     Dates: start: 20150131

REACTIONS (60)
  - Muscle spasticity [Unknown]
  - Renal function test abnormal [Unknown]
  - Vaginal discharge [Unknown]
  - Oedema peripheral [Recovered/Resolved]
  - Urine abnormality [Unknown]
  - Puncture site pain [Unknown]
  - Pyrexia [Recovered/Resolved]
  - Mallory-Weiss syndrome [Unknown]
  - Hypotonia [Unknown]
  - Emotional disorder [Unknown]
  - Pharyngeal erythema [Unknown]
  - Muscular weakness [Recovering/Resolving]
  - Emotional distress [Not Recovered/Not Resolved]
  - Vomiting [Unknown]
  - Lymphadenopathy [Recovered/Resolved]
  - Growth hormone deficiency [Unknown]
  - Malocclusion [Unknown]
  - Astigmatism [Unknown]
  - Connective tissue disorder [Unknown]
  - Somnolence [Unknown]
  - Infection [Unknown]
  - Insulin-like growth factor decreased [Unknown]
  - Drug ineffective [Unknown]
  - Insomnia [Not Recovered/Not Resolved]
  - Haematemesis [Recovered/Resolved]
  - Developmental delay [Unknown]
  - Gingivitis [Unknown]
  - Weight fluctuation [Unknown]
  - Malaise [Recovered/Resolved]
  - Gastritis [Unknown]
  - General physical health deterioration [Unknown]
  - Gastroenteritis [Unknown]
  - Arthropod bite [Unknown]
  - Facial spasm [Unknown]
  - Urinary tract infection [Unknown]
  - Suicidal ideation [Unknown]
  - Pyrexia [Unknown]
  - Myalgia [Unknown]
  - Gait disturbance [Recovering/Resolving]
  - Underweight [Not Recovered/Not Resolved]
  - Rash papular [Unknown]
  - Myositis [Unknown]
  - Uterine malposition [Unknown]
  - Dental caries [Unknown]
  - Polycystic ovaries [Unknown]
  - Body height below normal [Unknown]
  - Viral pharyngitis [Unknown]
  - Therapy non-responder [Unknown]
  - Headache [Unknown]
  - Nausea [Recovered/Resolved]
  - Movement disorder [Not Recovered/Not Resolved]
  - Epilepsy [Unknown]
  - Syncope [Not Recovered/Not Resolved]
  - Vomiting [Recovered/Resolved]
  - Depression [Not Recovered/Not Resolved]
  - Congenital ectodermal dysplasia [Unknown]
  - Face oedema [Recovered/Resolved]
  - Swelling [Unknown]
  - Tremor [Unknown]
  - Asthenia [Unknown]

NARRATIVE: CASE EVENT DATE: 2015
